FAERS Safety Report 15419518 (Version 2)
Quarter: 2018Q4

REPORT INFORMATION
  Report Type: Spontaneous
  Country: US (occurrence: US)
  Receive Date: 20180924
  Receipt Date: 20181128
  Transmission Date: 20190204
  Serious: No
  Sender: FDA-Public Use
  Company Number: US-SA-2018SA263787

PATIENT
  Age: 41 Year
  Sex: Female

DRUGS (2)
  1. ICY HOT [Suspect]
     Active Substance: MENTHOL\METHYL SALICYLATE
     Dosage: UNK
     Dates: start: 20180915
  2. ICY HOT [Suspect]
     Active Substance: MENTHOL\METHYL SALICYLATE
     Dosage: UNK
     Dates: start: 20180915

REACTIONS (1)
  - Drug ineffective [Unknown]
